FAERS Safety Report 24369405 (Version 1)
Quarter: 2024Q3

REPORT INFORMATION
  Report Type: Report from Study
  Country: US (occurrence: US)
  Receive Date: 20240927
  Receipt Date: 20240927
  Transmission Date: 20241017
  Serious: No
  Sender: ROCHE
  Company Number: US-ROCHE-2986447

PATIENT
  Age: 74 Year
  Sex: Female

DRUGS (18)
  1. LUCENTIS [Suspect]
     Active Substance: RANIBIZUMAB
     Indication: Dry age-related macular degeneration
     Route: 050
     Dates: start: 20181211
  2. LUCENTIS [Suspect]
     Active Substance: RANIBIZUMAB
  3. AVASTIN [Suspect]
     Active Substance: BEVACIZUMAB
     Indication: Neovascular age-related macular degeneration
     Route: 031
     Dates: start: 20180215
  4. AVASTIN [Suspect]
     Active Substance: BEVACIZUMAB
     Indication: Choroidal neovascularisation
  5. ATENOLOL [Concomitant]
     Active Substance: ATENOLOL
  6. PREDNISONE [Concomitant]
     Active Substance: PREDNISONE
  7. PRAVACHOL [Concomitant]
     Active Substance: PRAVASTATIN SODIUM
  8. NORVASC [Concomitant]
     Active Substance: AMLODIPINE BESYLATE
  9. CALCIUM [Concomitant]
     Active Substance: CALCIUM
  10. FOSAMAX [Concomitant]
     Active Substance: ALENDRONATE SODIUM
  11. OXYCODONE HYDROCHLORIDE [Concomitant]
     Active Substance: OXYCODONE HYDROCHLORIDE
  12. TAMBOCOR [Concomitant]
     Active Substance: FLECAINIDE ACETATE
  13. LOPRESSOR [Concomitant]
     Active Substance: METOPROLOL TARTRATE
  14. LASIX [Concomitant]
     Active Substance: FUROSEMIDE
  15. PROTONIX I.V. [Concomitant]
     Active Substance: PANTOPRAZOLE SODIUM
  16. PREDNISOLONE [Concomitant]
     Active Substance: PREDNISOLONE
  17. ATORVASTATIN [Concomitant]
     Active Substance: ATORVASTATIN
  18. PERCOCET [Concomitant]
     Active Substance: ACETAMINOPHEN\OXYCODONE HYDROCHLORIDE

REACTIONS (2)
  - Off label use [Unknown]
  - No adverse event [Unknown]
